FAERS Safety Report 4340456-6 (Version None)
Quarter: 2004Q2

REPORT INFORMATION
  Report Type: 
  Country: None (occurrence: None)
  Receive Date: 20040414
  Receipt Date: 20040331
  Transmission Date: 20050107
  Serious: Yes (Other)
  Sender: FDA-Public Use
  Company Number: 2004203475JP

PATIENT
  Age: 73 Year
  Sex: Male

DRUGS (7)
  1. SOLU-MEDROL [Suspect]
     Indication: DERMATOMYOSITIS
     Dosage: 1 G, QD, IV
     Route: 042
     Dates: start: 20040309, end: 20040311
  2. CHLOR-TRIMETON [Concomitant]
  3. LAC B (LACTOBACILLUS BIFIDUS, LYOPHILIZED) [Concomitant]
  4. MUCODYNE [Concomitant]
  5. LEVOTHYROXINE SODIUM [Concomitant]
  6. PREDNISOLONE [Concomitant]
  7. RACOL [Concomitant]

REACTIONS (4)
  - BLOOD BETA-D-GLUCAN INCREASED [None]
  - ERYTHEMA [None]
  - LARYNGEAL OEDEMA [None]
  - LOCAL SWELLING [None]
